FAERS Safety Report 9337486 (Version 1)
Quarter: 2013Q2

REPORT INFORMATION
  Report Type: Spontaneous
  Country: DE (occurrence: DE)
  Receive Date: 20130607
  Receipt Date: 20130607
  Transmission Date: 20140414
  Serious: Yes (Hospitalization, Other)
  Sender: FDA-Public Use
  Company Number: DE-ALEXION-A201301278

PATIENT
  Age: 70 Year
  Sex: 0

DRUGS (9)
  1. SOLIRIS 300MG [Suspect]
     Indication: PAROXYSMAL NOCTURNAL HAEMOGLOBINURIA
     Dosage: 600 MG, QW
     Route: 042
     Dates: start: 20100506, end: 20100629
  2. SOLIRIS 300MG [Suspect]
     Dosage: 900 MG, Q2W
     Route: 042
     Dates: start: 20100819
  3. ACETYLSALICYLIC ACID [Concomitant]
     Dosage: 100 MG, QD
     Route: 048
  4. BISOPROLOL [Concomitant]
     Dosage: 5 MG, QD
     Route: 048
  5. RAMIPRIL [Concomitant]
     Dosage: 2.5 MG, QD
     Route: 048
  6. FOLIC ACID [Concomitant]
     Dosage: 0.4 MG, QD
     Route: 048
  7. FENTANYL [Concomitant]
     Indication: PAIN
     Dosage: 50 MCG, Q3 DAYS
  8. LACTULOSE [Concomitant]
     Indication: LAXATIVE SUPPORTIVE CARE
     Dosage: UNK, TID
     Route: 048
  9. PANTOPRAZOL [Concomitant]
     Indication: GASTROINTESTINAL DISORDER
     Dosage: 40 MG, QD
     Route: 048

REACTIONS (6)
  - General physical condition abnormal [Unknown]
  - Lung infection [Unknown]
  - Transfusion [Unknown]
  - Haemolysis [Unknown]
  - Blood creatinine increased [Recovering/Resolving]
  - Inflammation [Unknown]
